FAERS Safety Report 6052398-9 (Version None)
Quarter: 2009Q1

REPORT INFORMATION
  Report Type: 
  Country: None (occurrence: None)
  Receive Date: 20090121
  Receipt Date: 20090106
  Transmission Date: 20090719
  Serious: Yes (Hospitalization)
  Sender: FDA-Public Use
  Company Number: 2008SP003244

PATIENT
  Age: 80 Year
  Sex: Male

DRUGS (17)
  1. XOPENEX [Suspect]
     Indication: ASTHMA
     Dosage: 0.63 MG/3ML; TID; INHALATION
     Route: 055
     Dates: start: 20080101
  2. PLAVIX [Concomitant]
  3. ASPIRIN [Concomitant]
  4. AVAPRO [Concomitant]
  5. PREVACID [Concomitant]
  6. TOPROL-XL [Concomitant]
  7. ZOCOR [Concomitant]
  8. FOLIC ACID [Concomitant]
  9. LAMICTAL [Concomitant]
  10. NOVOLOG [Concomitant]
  11. AMBIEN [Concomitant]
  12. ALBUTEROL [Concomitant]
  13. METFORMIN HCL [Concomitant]
  14. CLONAZEPAM [Concomitant]
  15. ADVAIR DISKUS 100/50 [Concomitant]
  16. LUNESTA [Concomitant]
  17. XANAX [Concomitant]

REACTIONS (3)
  - DYSPEPSIA [None]
  - PNEUMONIA [None]
  - SOMNOLENCE [None]
